FAERS Safety Report 10188323 (Version 3)
Quarter: 2014Q2

REPORT INFORMATION
  Report Type: Spontaneous
  Country: JP (occurrence: JP)
  Receive Date: 20140522
  Receipt Date: 20140618
  Transmission Date: 20141212
  Serious: Yes (Death, Other)
  Sender: FDA-Public Use
  Company Number: JP-OTSUKA-JP-2014-14122

PATIENT
  Age: 64 Year
  Sex: Female

DRUGS (85)
  1. SAMSCA [Suspect]
     Indication: OEDEMA DUE TO HEPATIC DISEASE
     Dosage: 7.5 MG MILLIGRAM(S), QAM
     Route: 048
     Dates: start: 20140402, end: 20140423
  2. SAMSCA [Suspect]
     Dosage: 7.5 MG MILLIGRAM(S), QAM
     Route: 048
     Dates: start: 20140425, end: 20140504
  3. LASIX [Suspect]
     Indication: PRODUCT USED FOR UNKNOWN INDICATION
     Dosage: 20 MG MILLIGRAM(S), DAILY DOSE
     Route: 042
     Dates: start: 20140422, end: 20140423
  4. LASIX [Suspect]
     Dosage: 30 MG MILLIGRAM(S), DAILY DOSE
     Route: 042
     Dates: start: 20140424, end: 20140503
  5. LASIX [Suspect]
     Dosage: 20 MG MILLIGRAM(S), DAILY DOSE
     Route: 042
     Dates: start: 20140504, end: 20140504
  6. LASIX [Suspect]
     Dosage: 60 MG MILLIGRAM(S), DAILY DOSE
     Route: 042
     Dates: start: 20140505, end: 20140509
  7. LASIX [Suspect]
     Dosage: 80 MG MILLIGRAM(S), DAILY DOSE
     Route: 042
     Dates: start: 20140510, end: 20140510
  8. LASIX [Suspect]
     Dosage: 40 MG MILLIGRAM(S), DAILY DOSE
     Route: 042
     Dates: start: 20140511, end: 20140512
  9. LASIX M [Suspect]
     Indication: PRODUCT USED FOR UNKNOWN INDICATION
     Dosage: 40 MG MILLIGRAM(S), QAM
     Route: 048
     Dates: end: 20140504
  10. FINIBAX [Concomitant]
     Dosage: 0.25 G GRAM(S), DAILY DOSE
     Route: 041
     Dates: start: 20140421, end: 20140421
  11. FINIBAX [Concomitant]
     Dosage: 0.75 G GRAM(S), DAILY DOSE
     Route: 041
     Dates: start: 20140422, end: 20140430
  12. SEISHOKU [Concomitant]
     Dosage: 100 ML MILLILITRE(S), DAILY DOSE
     Route: 041
     Dates: start: 20140421, end: 20140421
  13. SEISHOKU [Concomitant]
     Dosage: 300 ML MILLILITRE(S), DAILY DOSE
     Route: 041
     Dates: start: 20140422, end: 20140430
  14. SEISHOKU [Concomitant]
     Dosage: 23 ML MILLILITRE(S), DAILY DOSE
     Route: 041
     Dates: start: 20140504, end: 20140504
  15. SEISHOKU [Concomitant]
     Dosage: 123 ML MILLILITRE(S), DAILY DOSE
     Route: 041
     Dates: start: 20140505, end: 20140507
  16. SEISHOKU [Concomitant]
     Dosage: 146 ML MILLILITRE(S), DAILY DOSE
     Route: 041
     Dates: start: 20140508, end: 20140509
  17. SEISHOKU [Concomitant]
     Dosage: 166 ML MILLILITRE(S), DAILY DOSE
     Route: 041
     Dates: start: 20140510, end: 20140512
  18. NEO-MINOPHAGEN C [Concomitant]
     Dosage: 60 ML MILLILITRE(S), DAILY DOSE
     Route: 042
     Dates: start: 20140421, end: 20140512
  19. PRIMPERAN [Concomitant]
     Dosage: 10 MG MILLIGRAM(S), DAILY DOSE
     Route: 042
     Dates: start: 20140422, end: 20140422
  20. PRIMPERAN [Concomitant]
     Dosage: 10 MG MILLIGRAM(S), DAILY DOSE
     Route: 042
     Dates: start: 20140427, end: 20140427
  21. PRIMPERAN [Concomitant]
     Dosage: 10 MG MILLIGRAM(S), DAILY DOSE
     Route: 042
     Dates: start: 20140507, end: 20140507
  22. PRIMPERAN [Concomitant]
     Dosage: 10 MG MILLIGRAM(S), DAILY DOSE
     Route: 042
     Dates: start: 20140509, end: 20140509
  23. MANNITOL [Concomitant]
     Dosage: UNK
     Route: 042
     Dates: start: 20140422, end: 20140510
  24. LUNETORON [Concomitant]
     Dosage: 0.5 MG MILLIGRAM(S), DAILY DOSE
     Route: 042
     Dates: start: 20140422, end: 20140504
  25. LUNETORON [Concomitant]
     Dosage: 1.5 MG MILLIGRAM(S), DAILY DOSE
     Route: 042
     Dates: start: 20140505, end: 20140510
  26. LUNETORON [Concomitant]
     Dosage: 0.5 MG MILLIGRAM(S), DAILY DOSE
     Route: 042
     Dates: start: 20140511, end: 20140512
  27. GLUCOSE [Concomitant]
     Dosage: 20 ML MILLILITRE(S), DAILY DOSE
     Route: 042
     Dates: start: 20140422, end: 20140422
  28. GLUCOSE [Concomitant]
     Dosage: 20 ML MILLILITRE(S), DAILY DOSE
     Route: 042
     Dates: start: 20140427, end: 20140427
  29. GLUCOSE [Concomitant]
     Dosage: 100 ML MILLILITRE(S), DAILY DOSE
     Route: 041
     Dates: start: 20140430, end: 20140430
  30. GLUCOSE [Concomitant]
     Dosage: 200 ML MILLILITRE(S), DAILY DOSE
     Route: 041
     Dates: start: 20140501, end: 20140505
  31. GLUCOSE [Concomitant]
     Dosage: 40 ML MILLILITRE(S), DAILY DOSE
     Route: 042
     Dates: start: 20140504, end: 20140504
  32. GLUCOSE [Concomitant]
     Dosage: 20 ML MILLILITRE(S), DAILY DOSE
     Route: 042
     Dates: start: 20140505, end: 20140506
  33. GLUCOSE [Concomitant]
     Dosage: 300 ML MILLILITRE(S), DAILY DOSE
     Route: 041
     Dates: start: 20140506, end: 20140506
  34. GLUCOSE [Concomitant]
     Dosage: 400 ML MILLILITRE(S), DAILY DOSE
     Route: 041
     Dates: start: 20140507, end: 20140507
  35. GLUCOSE [Concomitant]
     Dosage: 40 ML MILLILITRE(S), DAILY DOSE
     Route: 042
     Dates: start: 20140507, end: 20140507
  36. GLUCOSE [Concomitant]
     Dosage: 20 ML MILLILITRE(S), DAILY DOSE
     Route: 042
     Dates: start: 20140508, end: 20140508
  37. GLUCOSE [Concomitant]
     Dosage: 200 ML MILLILITRE(S), DAILY DOSE
     Route: 041
     Dates: start: 20140508, end: 20140512
  38. GLUCOSE [Concomitant]
     Dosage: 40 ML MILLILITRE(S), DAILY DOSE
     Route: 042
     Dates: start: 20140509, end: 20140509
  39. GLUCOSE [Concomitant]
     Dosage: 100 ML MILLILITRE(S), DAILY DOSE
     Route: 041
     Dates: start: 20140513, end: 20140513
  40. ALBUMIN [Concomitant]
     Dosage: 50 ML MILLILITRE(S), DAILY DOSE
     Route: 041
     Dates: start: 20140424, end: 20140503
  41. OXYCONTIN [Concomitant]
     Dosage: 5 MG MILLIGRAM(S), BID
     Route: 048
     Dates: start: 20140426, end: 20140501
  42. OXYCONTIN [Concomitant]
     Dosage: 10 MG MILLIGRAM(S), BID
     Route: 048
     Dates: start: 20140504, end: 20140504
  43. KAYTWO N [Concomitant]
     Dosage: 20 MG MILLIGRAM(S), DAILY DOSE
     Route: 041
     Dates: start: 20140430, end: 20140430
  44. MAXIPIME [Concomitant]
     Dosage: 2 G GRAM(S), DAILY DOSE
     Route: 041
     Dates: start: 20140501, end: 20140512
  45. MAXIPIME [Concomitant]
     Dosage: 1 G GRAM(S), DAILY DOSE
     Route: 041
     Dates: start: 20140513, end: 20140513
  46. OXIFAST [Concomitant]
     Dosage: 10 MG MILLIGRAM(S), DAILY DOSE
     Route: 041
     Dates: start: 20140504, end: 20140507
  47. OXIFAST [Concomitant]
     Dosage: 20 MG MILLIGRAM(S), DAILY DOSE
     Route: 041
     Dates: start: 20140508, end: 20140512
  48. AMINOLEBAN EN [Concomitant]
     Dosage: 500 ML MILLILITRE(S), DAILY DOSE
     Route: 041
     Dates: start: 20140504, end: 20140512
  49. GASTER D [Concomitant]
     Dosage: 40 MG MILLIGRAM(S), DAILY DOSE
     Route: 042
     Dates: start: 20140504, end: 20140504
  50. GASTER D [Concomitant]
     Dosage: 20 MG MILLIGRAM(S), DAILY DOSE
     Route: 042
     Dates: start: 20140505, end: 20140512
  51. C-PARA [Concomitant]
     Dosage: 1 DF DOSAGE FORM, DAILY DOSE
     Route: 041
     Dates: start: 20140504, end: 20140513
  52. VEEN D [Concomitant]
     Dosage: 500 ML MILLILITRE(S), DAILY DOSE
     Route: 041
     Dates: start: 20140504, end: 20140513
  53. RED CELLS CONCENTRATES-LEUKOCYTES REDUCED [Concomitant]
     Dosage: 1 DF DOSAGE FORM, DAILY DOSE
     Route: 041
     Dates: start: 20140505, end: 20140505
  54. FRESH FROZEN PLASMA-LEUKOCYTES REDUCED [Concomitant]
     Dosage: 2 DF DOSAGE FORM, DAILY DOSE
     Route: 041
     Dates: start: 20140505, end: 20140505
  55. DECADRON S [Concomitant]
     Dosage: 1 DF DOSAGE FORM, DAILY DOSE
     Route: 041
     Dates: start: 20140505, end: 20140512
  56. CATABON [Concomitant]
     Dosage: 600 MG MILLIGRAM(S), DAILY DOSE
     Route: 041
     Dates: start: 20140505, end: 20140505
  57. CATABON [Concomitant]
     Dosage: 600 MG MILLIGRAM(S), DAILY DOSE
     Route: 041
     Dates: start: 20140507, end: 20140507
  58. CATABON [Concomitant]
     Dosage: 600 MG MILLIGRAM(S), DAILY DOSE
     Route: 041
     Dates: start: 20140509, end: 20140510
  59. CATABON [Concomitant]
     Dosage: 600 MG MILLIGRAM(S), DAILY DOSE
     Route: 041
     Dates: start: 20140512, end: 20140512
  60. SERENACE [Concomitant]
     Dosage: 5 MG MILLIGRAM(S), DAILY DOSE
     Route: 041
     Dates: start: 20140506, end: 20140506
  61. SERENACE [Concomitant]
     Dosage: 10 MG MILLIGRAM(S), DAILY DOSE
     Route: 041
     Dates: start: 20140507, end: 20140507
  62. TRAMCET [Concomitant]
     Dosage: 1 DF DOSAGE FORM, BID
     Route: 048
     Dates: end: 20140421
  63. TRAMCET [Concomitant]
     Dosage: 1 DF DOSAGE FORM, BID
     Route: 048
     Dates: start: 20140423, end: 20140424
  64. CRAVIT [Concomitant]
     Dosage: 500 MG MILLIGRAM(S), QAM
     Route: 048
     Dates: end: 20140425
  65. MAGMITT [Concomitant]
     Dosage: 330 MG MILLIGRAM(S), TID
     Route: 048
     Dates: end: 20140422
  66. MAGMITT [Concomitant]
     Dosage: 500 MG MILLIGRAM(S), BID
     Route: 048
     Dates: start: 20140426, end: 20140429
  67. BARACLUDE [Concomitant]
     Dosage: 0.5 MG MILLIGRAM(S), QAM
     Route: 048
     Dates: end: 20140504
  68. EXCELASE [Concomitant]
     Dosage: 1 DF DOSAGE FORM, TID
     Route: 048
     Dates: end: 20140504
  69. URSO [Concomitant]
     Dosage: 200 MG MILLIGRAM(S), TID
     Route: 048
     Dates: end: 20140504
  70. GLAKAY [Concomitant]
     Dosage: 15 MG MILLIGRAM(S), TID
     Route: 048
     Dates: end: 20140504
  71. ALFAROL [Concomitant]
     Dosage: 1 MCG, QAM
     Route: 048
     Dates: end: 20140504
  72. ALDACTONE A [Concomitant]
     Dosage: 25 MG MILLIGRAM(S), QAM
     Route: 048
     Dates: end: 20140504
  73. NEXIUM [Concomitant]
     Dosage: 20 MG MILLIGRAM(S), QPM
     Route: 048
     Dates: end: 20140504
  74. CALONAL [Concomitant]
     Indication: PAIN
     Dosage: 400 MG MILLIGRAM(S), PRN
     Route: 048
     Dates: end: 20140504
  75. CALONAL [Concomitant]
     Indication: PYREXIA
  76. KANAMYCIN [Concomitant]
     Dosage: 250 MG MILLIGRAM(S), DAILY DOSE
     Route: 048
     Dates: end: 20140504
  77. GASMOTIN [Concomitant]
     Dosage: 5 MG MILLIGRAM(S), TID
     Route: 048
     Dates: end: 20140504
  78. LAXOBERON [Concomitant]
     Dosage: UNK
     Route: 048
  79. LOXONIN [Concomitant]
     Indication: PAIN
     Dosage: UNK, PRN
     Route: 061
  80. LENDORMIN [Concomitant]
     Dosage: 0.25 MG MILLIGRAM(S), HS
     Route: 048
     Dates: end: 20140424
  81. LENDORMIN [Concomitant]
     Dosage: 0.5 MG MILLIGRAM(S), HS
     Route: 048
     Dates: start: 20140425, end: 20140430
  82. LENDORMIN [Concomitant]
     Dosage: 0.25 MG MILLIGRAM(S), HS
     Route: 048
     Dates: start: 20140501, end: 20140504
  83. LENDORMIN [Concomitant]
     Dosage: 0.25 MG MILLIGRAM(S), PRN
     Route: 048
  84. PURSENID [Concomitant]
     Indication: CONSTIPATION
     Dosage: 12 MG MILLIGRAM(S), PRN
     Route: 048
  85. PURSENID [Concomitant]
     Dosage: 24 MG MILLIGRAM(S), PRN
     Route: 048

REACTIONS (6)
  - Hepatic failure [Fatal]
  - Renal failure [Fatal]
  - Multi-organ failure [Fatal]
  - Portal vein thrombosis [Unknown]
  - Oesophageal varices haemorrhage [Unknown]
  - Shock [Unknown]
